FAERS Safety Report 7657307-4 (Version None)
Quarter: 2011Q3

REPORT INFORMATION
  Report Type: 
  Country: None (occurrence: None)
  Receive Date: 20110804
  Receipt Date: 20110727
  Transmission Date: 20111222
  Serious: Yes (Other)
  Sender: FDA-Public Use
  Company Number: PHHY2011CA40365

PATIENT
  Sex: Male

DRUGS (1)
  1. ZOMETA [Suspect]
     Indication: PROSTATE CANCER
     Dosage: 4 MG, Q5W
     Route: 042
     Dates: start: 20110427, end: 20110721

REACTIONS (3)
  - BACK DISORDER [None]
  - FATIGUE [None]
  - VOMITING PROJECTILE [None]
